FAERS Safety Report 12036938 (Version 1)
Quarter: 2016Q1

REPORT INFORMATION
  Report Type: Other
  Country: US (occurrence: US)
  Receive Date: 20160208
  Receipt Date: 20160208
  Transmission Date: 20160526
  Serious: Yes (Life-Threatening, Hospitalization, Other)
  Sender: FDA-Public Use
  Company Number: US-HETERO LABS LTD-1047431

PATIENT
  Age: 52 Year
  Sex: Male

DRUGS (2)
  1. VALACYCLOVIR [Suspect]
     Active Substance: VALACYCLOVIR HYDROCHLORIDE
     Indication: HERPES ZOSTER
     Route: 065
  2. ACYCLOVIR. [Suspect]
     Active Substance: ACYCLOVIR
     Route: 041

REACTIONS (2)
  - Status epilepticus [Recovered/Resolved]
  - Neurotoxicity [Recovered/Resolved]
